FAERS Safety Report 5139547-1 (Version None)
Quarter: 2006Q4

REPORT INFORMATION
  Report Type: 
  Country: None (occurrence: None)
  Receive Date: 20061024
  Receipt Date: 20061013
  Transmission Date: 20070319
  Serious: Yes (Other)
  Sender: FDA-Public Use
  Company Number: 2006126062

PATIENT
  Sex: Male
  Weight: 80 kg

DRUGS (7)
  1. AMLODIPINE [Suspect]
     Indication: HYPERTENSION
     Dosage: 5 MG (5 MG, DAILY),ORAL
     Route: 048
     Dates: start: 20050817, end: 20060728
  2. ALLOPURINOL [Concomitant]
  3. ASPIRIN [Concomitant]
  4. ATENOLOL [Concomitant]
  5. CO-CODAMOL (CODEINE PHOSPHATE, PARACETAMOL) [Concomitant]
  6. LISINOPRIL [Concomitant]
  7. SIMVASTATIN [Concomitant]

REACTIONS (3)
  - ECZEMA [None]
  - OEDEMA PERIPHERAL [None]
  - ONYCHOLYSIS [None]
